FAERS Safety Report 5776084-5 (Version None)
Quarter: 2008Q2

REPORT INFORMATION
  Report Type: 
  Country: None (occurrence: None)
  Receive Date: 20080617
  Receipt Date: 20080605
  Transmission Date: 20081010
  Serious: Yes (Hospitalization, Other)
  Sender: FDA-Public Use
  Company Number: AT-GILEAD-2008-0014980

PATIENT
  Sex: Male
  Weight: 54 kg

DRUGS (5)
  1. TRUVADA [Suspect]
     Indication: HIV INFECTION
     Route: 048
     Dates: start: 20071117, end: 20071213
  2. TRUVADA [Suspect]
     Indication: HEPATITIS B VIRUS
  3. COTRIM [Suspect]
     Indication: ANTIFUNGAL PROPHYLAXIS
     Route: 048
     Dates: start: 20071101
  4. PYRAZINAMIDE [Suspect]
     Indication: TUBERCULOSIS
     Dates: start: 20071127, end: 20071214
  5. KALETRA [Concomitant]
     Indication: HIV INFECTION
     Route: 048
     Dates: start: 20071117

REACTIONS (2)
  - RENAL FAILURE ACUTE [None]
  - WEIGHT DECREASED [None]
